FAERS Safety Report 14789652 (Version 1)
Quarter: 2018Q2

REPORT INFORMATION
  Report Type: Spontaneous
  Country: MA (occurrence: MA)
  Receive Date: 20180423
  Receipt Date: 20180423
  Transmission Date: 20180711
  Serious: Yes (Life-Threatening, Hospitalization)
  Sender: FDA-Public Use
  Company Number: MA-BAYER-2018-071841

PATIENT
  Age: 12 Year
  Sex: Male

DRUGS (4)
  1. ACETYLSALICYLIC ACID (} 100 MG) [Interacting]
     Active Substance: ASPIRIN
     Indication: PYREXIA
  2. ACETYLSALICYLIC ACID (} 100 MG) [Suspect]
     Active Substance: ASPIRIN
     Indication: GENERALISED ERYTHEMA
  3. CARBAMAZEPINE. [Interacting]
     Active Substance: CARBAMAZEPINE
  4. AMOXICILLIN. [Interacting]
     Active Substance: AMOXICILLIN

REACTIONS (2)
  - Toxic epidermal necrolysis [Recovered/Resolved]
  - Drug interaction [None]
